FAERS Safety Report 16579116 (Version 1)
Quarter: 2019Q3

REPORT INFORMATION
  Report Type: Report from Study
  Country: US (occurrence: US)
  Receive Date: 20190716
  Receipt Date: 20190716
  Transmission Date: 20191004
  Serious: Yes (Other)
  Sender: FDA-Public Use
  Company Number: US-CURIUM-200300151

PATIENT
  Age: 39 Year
  Sex: Female

DRUGS (5)
  1. SODIUM IODIDE I 131 [Suspect]
     Active Substance: SODIUM IODIDE I-131
     Indication: PAPILLARY THYROID CANCER
     Dosage: 6475 MBQ
     Route: 065
     Dates: start: 199104, end: 199104
  2. SODIUM IODIDE I 131 [Suspect]
     Active Substance: SODIUM IODIDE I-131
     Indication: PAPILLARY THYROID CANCER
     Dosage: 6401 MBQ
     Route: 065
     Dates: start: 198806, end: 198806
  3. SODIUM IODIDE I 131 [Suspect]
     Active Substance: SODIUM IODIDE I-131
     Indication: PAPILLARY THYROID CANCER
     Dosage: 6438 MBQ
     Route: 065
     Dates: start: 198706, end: 198706
  4. SODIUM IODIDE I 131 [Suspect]
     Active Substance: SODIUM IODIDE I-131
     Indication: PAPILLARY THYROID CANCER
     Dosage: 7881 MBQ
     Route: 065
     Dates: start: 199802, end: 199802
  5. SODIUM IODIDE I 131 [Suspect]
     Active Substance: SODIUM IODIDE I-131
     Indication: PAPILLARY THYROID CANCER
     Dosage: 7400 MBQ
     Route: 065
     Dates: start: 199812, end: 199812

REACTIONS (3)
  - Lacrimation increased [Unknown]
  - Dacryostenosis acquired [Unknown]
  - Lacrimal disorder [Unknown]
